FAERS Safety Report 23150926 (Version 3)
Quarter: 2024Q1

REPORT INFORMATION
  Report Type: Report from Study
  Country: US (occurrence: US)
  Receive Date: 20231106
  Receipt Date: 20240321
  Transmission Date: 20240410
  Serious: Yes (Hospitalization, Other)
  Sender: FDA-Public Use
  Company Number: US-TAKEDA-2023TUS104116

PATIENT
  Sex: Male

DRUGS (32)
  1. MARIBAVIR [Suspect]
     Active Substance: MARIBAVIR
     Indication: Cytomegalovirus infection
     Dosage: 400 MILLIGRAM, BID
     Route: 048
  2. VALGANCICLOVIR [Suspect]
     Active Substance: VALGANCICLOVIR
     Indication: Product used for unknown indication
     Dosage: UNK
     Route: 065
     Dates: start: 20230916, end: 20231017
  3. DAPSONE [Concomitant]
     Active Substance: DAPSONE
     Dosage: UNK
     Dates: start: 20231024
  4. DAPSONE [Concomitant]
     Active Substance: DAPSONE
     Dosage: 100 MILLIGRAM, QD
     Route: 048
  5. FOSCARNET [Concomitant]
     Active Substance: FOSCARNET
     Dosage: UNK
     Route: 065
     Dates: start: 20231021
  6. FOSCARNET [Concomitant]
     Active Substance: FOSCARNET
     Dosage: 3800 MILLIGRAM, QD
     Route: 042
  7. CEFEPIME [Concomitant]
     Active Substance: CEFEPIME HYDROCHLORIDE
     Dosage: UNK
     Dates: start: 20231017
  8. CEFEPIME [Concomitant]
     Active Substance: CEFEPIME HYDROCHLORIDE
     Dosage: 2 GRAM, Q12H
     Route: 042
  9. ACETAMINOPHEN [Concomitant]
     Active Substance: ACETAMINOPHEN
     Dosage: UNK
  10. FAMOTIDINE [Concomitant]
     Active Substance: FAMOTIDINE
     Dosage: UNK
  11. HOMATROPINE METHYLBROMIDE\HYDROCODONE BITARTRATE [Concomitant]
     Active Substance: HOMATROPINE METHYLBROMIDE\HYDROCODONE BITARTRATE
  12. PROCHLORPERAZINE [Concomitant]
     Active Substance: PROCHLORPERAZINE
  13. TRAMADOL [Concomitant]
     Active Substance: TRAMADOL\TRAMADOL HYDROCHLORIDE
  14. VANCOMYCIN [Concomitant]
     Active Substance: VANCOMYCIN
     Dosage: UNK
     Dates: start: 20231017
  15. VANCOMYCIN [Concomitant]
     Active Substance: VANCOMYCIN
     Dosage: 750 MILLIGRAM, QD
     Route: 042
  16. BACTRIM [Concomitant]
     Active Substance: SULFAMETHOXAZOLE\TRIMETHOPRIM
     Indication: Prophylaxis
     Dosage: UNK
     Dates: end: 20231018
  17. ACYCLOVIR [Concomitant]
     Active Substance: ACYCLOVIR
     Indication: Prophylaxis
     Dosage: UNK
     Dates: end: 20231023
  18. AMLODIPINE BESYLATE [Concomitant]
     Active Substance: AMLODIPINE BESYLATE
     Dosage: 10 MILLIGRAM, QD
     Route: 048
  19. APIXABAN [Concomitant]
     Active Substance: APIXABAN
     Dosage: 5 MILLIGRAM, BID
     Route: 048
  20. ATORVASTATIN [Concomitant]
     Active Substance: ATORVASTATIN
     Dosage: 40 MILLIGRAM, QD
  21. DANAZOL [Concomitant]
     Active Substance: DANAZOL
     Dosage: 100 MILLIGRAM, BID
     Route: 048
  22. FLUTICASONE PROPIONATE [Concomitant]
     Active Substance: FLUTICASONE PROPIONATE
     Dosage: UNK UNK, QD
     Route: 045
  23. FOLIC ACID [Concomitant]
     Active Substance: FOLIC ACID
     Dosage: 1 MILLIGRAM, QD
     Route: 048
  24. GUAIFENESIN [Concomitant]
     Active Substance: GUAIFENESIN
     Dosage: 1200 MILLIGRAM, BID
     Route: 048
  25. HYDRALAZINE [Concomitant]
     Active Substance: HYDRALAZINE HYDROCHLORIDE
     Dosage: 25 MILLIGRAM, TID
     Route: 048
  26. LEVOTHYROXINE [Concomitant]
     Active Substance: LEVOTHYROXINE\LEVOTHYROXINE SODIUM
     Dosage: 112 MICROGRAM
     Route: 048
  27. PANTOPRAZOLE [Concomitant]
     Active Substance: PANTOPRAZOLE
     Dosage: 40 MILLIGRAM, QD
     Route: 048
  28. POTASSIUM CHLORIDE [Concomitant]
     Active Substance: POTASSIUM CHLORIDE
     Dosage: UNK UNK, BID
     Route: 048
  29. POTASSIUM PHOSPHATE [Concomitant]
     Active Substance: POTASSIUM PHOSPHATE
     Route: 042
  30. PREDNISONE [Concomitant]
     Active Substance: PREDNISONE
     Dosage: 40 MILLIGRAM, QD
     Route: 048
  31. SODIUM CHLORIDE [Concomitant]
     Active Substance: SODIUM CHLORIDE
     Dosage: 500 MILLILITER, QD
     Route: 042
  32. TAMSULOSIN [Concomitant]
     Active Substance: TAMSULOSIN
     Dosage: 0.4 MILLIGRAM, QD
     Route: 048

REACTIONS (28)
  - Pneumonia [Unknown]
  - Haemolytic anaemia [Unknown]
  - Febrile neutropenia [Unknown]
  - Cytomegalovirus viraemia [Unknown]
  - Cytomegalovirus chorioretinitis [Recovering/Resolving]
  - Pancytopenia [Unknown]
  - Waldenstrom^s macroglobulinaemia [Unknown]
  - Pancreatitis [Unknown]
  - Femur fracture [Unknown]
  - Leukopenia [Unknown]
  - Cytomegalovirus colitis [Unknown]
  - Chronic kidney disease [Unknown]
  - Acute kidney injury [Recovering/Resolving]
  - Dyspnoea exertional [Not Recovered/Not Resolved]
  - Oropharyngeal pain [Unknown]
  - Odynophagia [Unknown]
  - Oedema peripheral [Recovering/Resolving]
  - Chest pain [Unknown]
  - Peripheral swelling [Unknown]
  - Weight increased [Unknown]
  - Limb discomfort [Recovered/Resolved]
  - Ecchymosis [Unknown]
  - Fall [Unknown]
  - Body temperature abnormal [Unknown]
  - Cough [Unknown]
  - White blood cell count decreased [Unknown]
  - Hypertension [Unknown]
  - Decreased appetite [Unknown]
